FAERS Safety Report 12646266 (Version 1)
Quarter: 2016Q3

REPORT INFORMATION
  Report Type: Spontaneous
  Country: CH (occurrence: CH)
  Receive Date: 20160811
  Receipt Date: 20160811
  Transmission Date: 20161109
  Serious: Yes (Hospitalization, Other)
  Sender: FDA-Public Use
  Company Number: CH-IGI LABORATORIES, INC.-1056219

PATIENT
  Age: 59 Year
  Sex: Male

DRUGS (18)
  1. NOVALGIN [Concomitant]
     Active Substance: METAMIZOLE SODIUM
     Dates: start: 201501, end: 20150311
  2. EPHEDRINE. [Concomitant]
     Active Substance: EPHEDRINE
     Dates: start: 20150115, end: 20150115
  3. FRAXIPARINE [Concomitant]
     Active Substance: NADROPARIN CALCIUM
     Dates: start: 201501, end: 201501
  4. KEPPRA [Concomitant]
     Active Substance: LEVETIRACETAM
     Route: 048
     Dates: start: 20150127, end: 20150306
  5. PHENYDAN [Suspect]
     Active Substance: PHENYTOIN
     Route: 042
  6. FENTANYL. [Concomitant]
     Active Substance: FENTANYL
     Dates: start: 20150115, end: 20150116
  7. MANNITOL. [Concomitant]
     Active Substance: MANNITOL
     Dates: start: 20150115, end: 20150115
  8. PHENYDAN [Suspect]
     Active Substance: PHENYTOIN
     Route: 048
     Dates: start: 20150130, end: 20150306
  9. ZOFRAN [Concomitant]
     Active Substance: ONDANSETRON HYDROCHLORIDE
     Dates: start: 20150115, end: 20150116
  10. PRIMPERAN [Concomitant]
     Active Substance: METOCLOPRAMIDE HYDROCHLORIDE
     Dates: start: 201501, end: 201501
  11. PERFALGAN [Concomitant]
     Active Substance: ACETAMINOPHEN
     Dates: start: 201501, end: 201502
  12. ESMERON [Concomitant]
     Active Substance: ROCURONIUM BROMIDE
     Dates: start: 20150115, end: 20150115
  13. ZINACEF [Suspect]
     Active Substance: CEFUROXIME SODIUM
     Indication: ANTIBIOTIC PROPHYLAXIS
     Route: 041
     Dates: start: 20150115, end: 20150115
  14. PANTOZOL [Suspect]
     Active Substance: PANTOPRAZOLE SODIUM
     Route: 048
     Dates: start: 201501, end: 20150309
  15. RIVOTRIL [Concomitant]
     Active Substance: CLONAZEPAM
     Dates: start: 20150130, end: 20150130
  16. URBANYL [Concomitant]
     Active Substance: CLOBAZAM
     Dates: start: 20150129, end: 20150204
  17. DISOPRIVAN [Concomitant]
     Active Substance: PROPOFOL
     Dates: start: 20150115, end: 20150115
  18. ULTIVA [Concomitant]
     Active Substance: REMIFENTANIL HYDROCHLORIDE
     Dates: start: 20150115, end: 20150115

REACTIONS (12)
  - Lymphocyte morphology abnormal [Recovered/Resolved]
  - Pneumonia [Unknown]
  - Urticaria [Unknown]
  - Oral candidiasis [Unknown]
  - Pruritus [Recovered/Resolved]
  - Tachycardia [Recovering/Resolving]
  - Drug reaction with eosinophilia and systemic symptoms [Recovering/Resolving]
  - Pyrexia [Recovered/Resolved]
  - Rash maculo-papular [Recovering/Resolving]
  - Eosinophilia [Recovered/Resolved]
  - Hepatitis [Recovering/Resolving]
  - Arthralgia [Recovered/Resolved]

NARRATIVE: CASE EVENT DATE: 2015
